FAERS Safety Report 9517331 (Version 1)
Quarter: 2013Q3

REPORT INFORMATION
  Report Type: Spontaneous
  Country: US (occurrence: US)
  Receive Date: 20130911
  Receipt Date: 20130911
  Transmission Date: 20140515
  Serious: Yes (Hospitalization, Other)
  Sender: FDA-Public Use
  Company Number: US-TAKEDA-2013TUS000273

PATIENT
  Sex: 0

DRUGS (3)
  1. ACTOS [Suspect]
  2. GLYBURIDE [Suspect]
  3. JANUVIA [Suspect]

REACTIONS (7)
  - Coma [Unknown]
  - Blood glucose decreased [Unknown]
  - Vitamin B12 decreased [Unknown]
  - Anaemia [Unknown]
  - Balance disorder [Unknown]
  - Musculoskeletal disorder [Unknown]
  - Arthropathy [Unknown]
